FAERS Safety Report 9251977 (Version 1)
Quarter: 2013Q2

REPORT INFORMATION
  Report Type: Spontaneous
  Country: PL (occurrence: PL)
  Receive Date: 20130424
  Receipt Date: 20130425
  Transmission Date: 20140414
  Serious: Yes (Death, Hospitalization, Other)
  Sender: FDA-Public Use
  Company Number: PL-JNJFOC-20130410701

PATIENT
  Sex: 0

DRUGS (10)
  1. CLADRIBINE [Suspect]
     Indication: ACUTE MYELOID LEUKAEMIA
     Dosage: 1-5 DAYS, DAC THERAPY
     Route: 042
  2. CLADRIBINE [Suspect]
     Indication: ACUTE MYELOID LEUKAEMIA
     Dosage: 1-5 DAYS, DAC THERAPY
     Route: 042
  3. CYTARABINE [Suspect]
     Indication: ACUTE MYELOID LEUKAEMIA
     Dosage: DAY 1-5, CONSOLIDATION THERAPY
     Route: 042
  4. CYTARABINE [Suspect]
     Indication: ACUTE MYELOID LEUKAEMIA
     Dosage: 1-5 DAYS, DAC THERAPY
     Route: 042
  5. CYTARABINE [Suspect]
     Indication: ACUTE MYELOID LEUKAEMIA
     Dosage: SIX CYCLES, DAY1-5, MAINTENANCE THERAPY ALONG WITH DAUNORUBICINE
     Route: 058
  6. CYTARABINE [Suspect]
     Indication: ACUTE MYELOID LEUKAEMIA
     Dosage: DAY 1-5, SIX CYCLES, MAINTENANCE THERAPY ALONG WITH TIOGUANINE, ALTERNATIVELY
     Route: 058
  7. MITOXANTRON [Suspect]
     Indication: ACUTE MYELOID LEUKAEMIA
     Dosage: DAY 1-2, CONSOLIDATION THERAPY
     Route: 042
  8. TIOGUANINE [Suspect]
     Indication: ACUTE MYELOID LEUKAEMIA
     Dosage: DAY 1-5, SIX CYCLES, MAINTENANCE THERPAY
     Route: 048
  9. DAUNORUBICINE [Suspect]
     Indication: ACUTE MYELOID LEUKAEMIA
     Dosage: DAY 1-2, MAINTENANCE THERAPY
     Route: 042
  10. DAUNORUBICINE [Suspect]
     Indication: ACUTE MYELOID LEUKAEMIA
     Dosage: 1-5 DAYS, DAC THERAPY
     Route: 042

REACTIONS (5)
  - Death [Fatal]
  - Infection [Unknown]
  - Neutropenia [Unknown]
  - Thrombocytopenia [Unknown]
  - Off label use [Unknown]
